FAERS Safety Report 9831664 (Version 3)
Quarter: 2014Q1

REPORT INFORMATION
  Report Type: Spontaneous
  Country: US (occurrence: US)
  Receive Date: 20140121
  Receipt Date: 20140306
  Transmission Date: 20141002
  Serious: No
  Sender: FDA-Public Use
  Company Number: US-PFIZER INC-2014015826

PATIENT
  Age: 85 Year
  Sex: Female

DRUGS (7)
  1. NEURONTIN [Suspect]
     Indication: HYPOAESTHESIA
     Dosage: UNK
  2. NEURONTIN [Suspect]
     Indication: PAIN IN EXTREMITY
  3. GABAPENTIN ENACARBIL [Suspect]
     Indication: HYPOAESTHESIA
     Dosage: UNK
     Dates: start: 2012
  4. GABAPENTIN ENACARBIL [Suspect]
     Indication: MUSCULOSKELETAL STIFFNESS
  5. METHIMAZOLE [Concomitant]
     Dosage: UNK
  6. ALEVE [Concomitant]
     Dosage: UNK
  7. LORAZEPAM [Concomitant]
     Dosage: UNK

REACTIONS (4)
  - Feeling drunk [Unknown]
  - Dizziness [Unknown]
  - Nausea [Unknown]
  - Drug ineffective [Unknown]
